FAERS Safety Report 16619924 (Version 1)
Quarter: 2019Q3

REPORT INFORMATION
  Report Type: Spontaneous
  Country: US (occurrence: US)
  Receive Date: 20190723
  Receipt Date: 20190723
  Transmission Date: 20191004
  Serious: No
  Sender: FDA-Public Use
  Company Number: US-IGSA-SR10006597

PATIENT
  Age: 50 Year
  Sex: Female
  Weight: 68.2 kg

DRUGS (2)
  1. GAMUNEX-C [Suspect]
     Active Substance: HUMAN IMMUNOGLOBULIN G
     Dosage: UNK UNK, Q.M.T.
     Route: 042
     Dates: start: 20110523
  2. GAMUNEX-C [Suspect]
     Active Substance: HUMAN IMMUNOGLOBULIN G
     Indication: IMMUNODEFICIENCY COMMON VARIABLE
     Dosage: 40 G, UNK
     Route: 042
     Dates: start: 20180517

REACTIONS (2)
  - Tinnitus [Unknown]
  - Deafness [Unknown]

NARRATIVE: CASE EVENT DATE: 20180624
